FAERS Safety Report 6141222-1 (Version None)
Quarter: 2009Q2

REPORT INFORMATION
  Report Type: 
  Country: None (occurrence: None)
  Receive Date: 20090402
  Receipt Date: 20090327
  Transmission Date: 20091009
  Serious: Yes (Death)
  Sender: FDA-Public Use
  Company Number: FR-ELI_LILLY_AND_COMPANY-FR200903007299

PATIENT
  Sex: Female
  Weight: 58 kg

DRUGS (11)
  1. DROTRECOGIN ALFA (ACTIVATED) [Suspect]
     Indication: SEPSIS
     Dosage: 24 UG/KG/HR, OTHER
     Route: 042
     Dates: start: 20080506, end: 20080507
  2. AZANTAC [Concomitant]
     Indication: GASTRIC DISORDER
     Dates: start: 20080505
  3. ATARAX [Concomitant]
     Indication: ANXIOLYTIC THERAPY
     Dates: start: 20080505
  4. LASIX [Concomitant]
     Indication: DIURETIC THERAPY
     Dates: start: 20080505, end: 20080505
  5. HYPNOVEL [Concomitant]
     Indication: SEDATION
     Dates: start: 20080505, end: 20080507
  6. FENTANYL-25 [Concomitant]
     Indication: SEDATION
     Dates: start: 20080505, end: 20080507
  7. TRACRIUM [Concomitant]
     Indication: SEDATION
     Dates: start: 20080505, end: 20080507
  8. PHOCYTAN [Concomitant]
     Dates: start: 20080507
  9. ACTRAPID                           /00646001/ [Concomitant]
     Indication: DIABETES MELLITUS INADEQUATE CONTROL
     Dates: start: 20080505
  10. NORADRENALINE [Concomitant]
  11. CORDARONE [Concomitant]

REACTIONS (2)
  - BRAIN DEATH [None]
  - CEREBRAL HAEMATOMA [None]
